FAERS Safety Report 6552836-9 (Version None)
Quarter: 2010Q1

REPORT INFORMATION
  Report Type: 
  Country: None (occurrence: None)
  Receive Date: 20100121
  Receipt Date: 20100111
  Transmission Date: 20100710
  Serious: Yes (Life-Threatening, Hospitalization, Other)
  Sender: FDA-Public Use
  Company Number: 471434

PATIENT
  Age: 14 Year
  Sex: Male
  Weight: 36 kg

DRUGS (17)
  1. METHOTREXATE [Suspect]
     Indication: DRUG USE FOR UNKNOWN INDICATION
     Dosage: 2000MG, ONCE, INTRAVENOUS
     Route: 042
  2. ATIVAN [Concomitant]
  3. CHLORHEXIDINE GLUCONATE [Concomitant]
  4. CYTARABINE [Concomitant]
  5. (FUROSEMIDE) [Concomitant]
  6. GLEEVEC [Concomitant]
  7. GRAVOL TAB [Concomitant]
  8. (LEUCOVIRIN /00566701/) [Concomitant]
  9. (LISINOPRIL /00894002/) [Concomitant]
  10. (MERREM /01250501/) [Concomitant]
  11. MORPHINE [Concomitant]
  12. ONDANSETRON [Concomitant]
  13. PEG-3350 AND ELECTROLYTES [Concomitant]
  14. RANITIDINE [Concomitant]
  15. SEPTRA [Concomitant]
  16. TOBRAMYCIN [Concomitant]
  17. TYLENOL (CAPLET) [Concomitant]

REACTIONS (17)
  - ACUTE RESPIRATORY DISTRESS SYNDROME [None]
  - ALANINE AMINOTRANSFERASE INCREASED [None]
  - ASPARTATE AMINOTRANSFERASE INCREASED [None]
  - BLOOD CREATININE INCREASED [None]
  - BONE MARROW FAILURE [None]
  - CARDIAC FAILURE [None]
  - CEREBRAL DISORDER [None]
  - DEPRESSED LEVEL OF CONSCIOUSNESS [None]
  - DRUG TOXICITY [None]
  - ENCEPHALOPATHY [None]
  - HEPATIC FUNCTION ABNORMAL [None]
  - HYPERTENSION [None]
  - LUNG DISORDER [None]
  - MENTAL IMPAIRMENT [None]
  - MUCOSAL INFLAMMATION [None]
  - RENAL FAILURE ACUTE [None]
  - RENAL TUBULAR NECROSIS [None]
